FAERS Safety Report 16912985 (Version 9)
Quarter: 2025Q1

REPORT INFORMATION
  Report Type: Report from Study
  Country: US (occurrence: US)
  Receive Date: 20191014
  Receipt Date: 20250318
  Transmission Date: 20250408
  Serious: Yes (Life-Threatening, Hospitalization, Other)
  Sender: TAKEDA
  Company Number: US-SHIRE-US201932497

PATIENT
  Age: 60 Year
  Sex: Female
  Weight: 94 kg

DRUGS (5)
  1. PARATHYROID HORMONE [Suspect]
     Active Substance: PARATHYROID HORMONE
     Indication: Hypoparathyroidism
     Dosage: 50 MICROGRAM, QD
  2. PARATHYROID HORMONE [Suspect]
     Active Substance: PARATHYROID HORMONE
     Dosage: 50 MICROGRAM, QD
     Dates: end: 20250314
  3. PARATHYROID HORMONE [Suspect]
     Active Substance: PARATHYROID HORMONE
  4. CALCIUM [Concomitant]
     Active Substance: CALCIUM
     Indication: Hypocalcaemia
  5. CALCITRIOL [Concomitant]
     Active Substance: CALCITRIOL
     Indication: Hypocalcaemia

REACTIONS (5)
  - Blood phosphorus increased [Recovering/Resolving]
  - Hypocalcaemia [Recovering/Resolving]
  - Electrocardiogram QT prolonged [Recovering/Resolving]
  - Product use issue [Unknown]
  - Extra dose administered [Unknown]

NARRATIVE: CASE EVENT DATE: 20190928
